FAERS Safety Report 6091499-6 (Version None)
Quarter: 2009Q1

REPORT INFORMATION
  Report Type: 
  Country: None (occurrence: None)
  Receive Date: 20090225
  Receipt Date: 20090216
  Transmission Date: 20090719
  Serious: Yes (Other)
  Sender: FDA-Public Use
  Company Number: SI-BAYER-200829451GPV

PATIENT
  Age: 53 Year
  Sex: Female
  Weight: 81 kg

DRUGS (2)
  1. ANGELIQ [Suspect]
     Indication: HORMONE REPLACEMENT THERAPY
     Dates: end: 20060617
  2. ACTIVELLE [Concomitant]
     Indication: HORMONE REPLACEMENT THERAPY
     Dates: end: 20041101

REACTIONS (2)
  - HYPERTENSIVE CRISIS [None]
  - VERTIGO [None]
